FAERS Safety Report 12399789 (Version 1)
Quarter: 2016Q2

REPORT INFORMATION
  Report Type: Spontaneous
  Country: US (occurrence: US)
  Receive Date: 20160524
  Receipt Date: 20160524
  Transmission Date: 20160815
  Serious: Yes (Hospitalization)
  Sender: FDA-Public Use
  Company Number: US-ENDO PHARMACEUTICALS INC.-2016-003326

PATIENT
  Sex: Female
  Weight: 104.42 kg

DRUGS (2)
  1. OPANA ER [Suspect]
     Active Substance: OXYMORPHONE HYDROCHLORIDE
     Indication: PAIN IN EXTREMITY
     Route: 048
     Dates: start: 2004
  2. FENTANYL TRANSDERMAL SYSTEM [Concomitant]
     Active Substance: FENTANYL
     Indication: PAIN
     Route: 062
     Dates: start: 2014

REACTIONS (7)
  - Pancreatitis [Unknown]
  - Cerebrovascular accident [Unknown]
  - Pain in extremity [Unknown]
  - Eye movement disorder [Unknown]
  - Thrombosis [Unknown]
  - Musculoskeletal stiffness [Unknown]
  - Aphasia [Unknown]

NARRATIVE: CASE EVENT DATE: 2014
